FAERS Safety Report 23969242 (Version 8)
Quarter: 2024Q4

REPORT INFORMATION
  Report Type: Spontaneous
  Country: US (occurrence: US)
  Receive Date: 20240612
  Receipt Date: 20241028
  Transmission Date: 20250115
  Serious: Yes (Other)
  Sender: ASTELLAS
  Company Number: US-ASTELLAS-2024US016191

PATIENT
  Age: 61 Year
  Sex: Female

DRUGS (10)
  1. VEOZAH [Suspect]
     Active Substance: FEZOLINETANT
     Indication: Hot flush
     Route: 048
     Dates: start: 202309, end: 20240509
  2. ALBUTEROL [Concomitant]
     Active Substance: ALBUTEROL
     Indication: Product used for unknown indication
     Dosage: INHALER PRN
     Route: 065
  3. ZYRTEC [Concomitant]
     Active Substance: CETIRIZINE HYDROCHLORIDE
     Indication: Product used for unknown indication
     Dosage: PM DAILY
     Route: 065
  4. PREAD [Concomitant]
     Indication: Product used for unknown indication
     Route: 065
  5. CRESTOR [Concomitant]
     Active Substance: ROSUVASTATIN CALCIUM
     Indication: Product used for unknown indication
     Route: 065
  6. LUNESTA [Concomitant]
     Active Substance: ESZOPICLONE
     Indication: Product used for unknown indication
     Dosage: PRN
     Route: 065
  7. SETARIN [Concomitant]
     Indication: Product used for unknown indication
     Route: 065
  8. TESTOSTERONE CAPROATE [Concomitant]
     Indication: Product used for unknown indication
     Route: 065
  9. IMVEXXY [Concomitant]
     Active Substance: ESTRADIOL
     Indication: Product used for unknown indication
     Route: 067
  10. ZOPAX [ALPRAZOLAM] [Concomitant]
     Indication: Product used for unknown indication
     Dosage: PRN (AS NEEDED)
     Route: 065

REACTIONS (2)
  - Liver function test increased [Recovered/Resolved]
  - Blood cholesterol increased [Unknown]

NARRATIVE: CASE EVENT DATE: 20240328
